FAERS Safety Report 19459658 (Version 1)
Quarter: 2021Q2

REPORT INFORMATION
  Report Type: Spontaneous
  Country: US (occurrence: US)
  Receive Date: 20210624
  Receipt Date: 20210624
  Transmission Date: 20210717
  Serious: Yes (Other)
  Sender: FDA-Public Use
  Company Number: US-PFIZER INC-2021404690

PATIENT
  Age: 77 Year
  Sex: Female

DRUGS (28)
  1. RUXOLITINIB [Suspect]
     Active Substance: RUXOLITINIB
     Dosage: 5 MG, 2X/DAY
     Route: 048
     Dates: start: 20200718
  2. RUXOLITINIB [Suspect]
     Active Substance: RUXOLITINIB
     Dosage: 5 UNK
     Route: 048
     Dates: start: 20200718
  3. ROSUVASTATIN CALCIUM. [Concomitant]
     Active Substance: ROSUVASTATIN CALCIUM
  4. HYDROXYCARBAMIDE [Concomitant]
     Active Substance: HYDROXYUREA
  5. HYDROXYUREA. [Concomitant]
     Active Substance: HYDROXYUREA
  6. SILVER SULFADIAZENE [Concomitant]
     Active Substance: SILVER SULFADIAZINE
  7. SSD [Concomitant]
     Active Substance: SILVER SULFADIAZINE
  8. METOPROLOL TARTRATE. [Concomitant]
     Active Substance: METOPROLOL TARTRATE
  9. VITAMINS NOS [Concomitant]
     Active Substance: VITAMINS
  10. VITAMIN B12 [Concomitant]
     Active Substance: CYANOCOBALAMIN
  11. LYRICA [Suspect]
     Active Substance: PREGABALIN
     Dosage: UNK UNK, 1X/DAY
  12. ACETAMINOPHEN + COD. PHOSP. [Concomitant]
     Active Substance: ACETAMINOPHEN\CODEINE PHOSPHATE
  13. PARACETAMOL [Concomitant]
     Active Substance: ACETAMINOPHEN
  14. GABAPENTIN. [Concomitant]
     Active Substance: GABAPENTIN
  15. LYRICA [Suspect]
     Active Substance: PREGABALIN
     Dosage: UNK UNK, 3X/DAY
  16. RUXOLITINIB [Suspect]
     Active Substance: RUXOLITINIB
     Indication: ESSENTIAL THROMBOCYTHAEMIA
     Dosage: 5 MG, 2X/DAY
     Route: 048
  17. CHOLECALCIFEROL [Concomitant]
     Active Substance: CHOLECALCIFEROL
  18. LEVOTHYROXINE. [Concomitant]
     Active Substance: LEVOTHYROXINE
  19. TYLENOL 8HR [Concomitant]
     Active Substance: ACETAMINOPHEN
  20. RUXOLITINIB [Suspect]
     Active Substance: RUXOLITINIB
     Dosage: 10 MG, 2X/DAY
     Route: 048
  21. BUDESONIDE. [Concomitant]
     Active Substance: BUDESONIDE
  22. FUROSEMIDE. [Concomitant]
     Active Substance: FUROSEMIDE
  23. OMEPRAZOLE. [Concomitant]
     Active Substance: OMEPRAZOLE
  24. POTASSIUM SULFATE [Concomitant]
     Active Substance: POTASSIUM SULFATE
  25. MAGNESIUM SULFATE. [Concomitant]
     Active Substance: MAGNESIUM SULFATE
  26. LYRICA [Suspect]
     Active Substance: PREGABALIN
     Indication: PRODUCT USED FOR UNKNOWN INDICATION
     Dosage: 300 MG
  27. SODIUM SULFATE [Concomitant]
     Active Substance: SODIUM SULFATE
  28. POTASSIUM CHLORIDE. [Concomitant]
     Active Substance: POTASSIUM CHLORIDE

REACTIONS (20)
  - Off label use [Unknown]
  - Dizziness [Recovered/Resolved]
  - Epistaxis [Recovered/Resolved]
  - Vision blurred [Recovered/Resolved]
  - Muscle spasms [Recovered/Resolved]
  - Oedema [Recovered/Resolved]
  - Alopecia [Recovered/Resolved]
  - Fatigue [Recovered/Resolved]
  - Thinking abnormal [Recovered/Resolved]
  - Abdominal pain [Recovered/Resolved]
  - Haemoglobin decreased [Recovering/Resolving]
  - Platelet count decreased [Recovering/Resolving]
  - Stomatitis [Recovered/Resolved]
  - Retinal haemorrhage [Recovered/Resolved]
  - Arthralgia [Recovered/Resolved]
  - White blood cell count decreased [Recovering/Resolving]
  - Therapeutic response unexpected [Recovered/Resolved]
  - Feeling abnormal [Recovered/Resolved]
  - Hypoaesthesia [Recovered/Resolved]
  - Balance disorder [Recovered/Resolved]

NARRATIVE: CASE EVENT DATE: 202008
